FAERS Safety Report 17545508 (Version 1)
Quarter: 2020Q1

REPORT INFORMATION
  Report Type: Report from Study
  Country: EG (occurrence: EG)
  Receive Date: 20200316
  Receipt Date: 20200316
  Transmission Date: 20200409
  Serious: Yes (Other)
  Sender: FDA-Public Use
  Company Number: NVSC2020EG069241

PATIENT
  Sex: Female

DRUGS (3)
  1. GLIVEC [Suspect]
     Active Substance: IMATINIB MESYLATE
     Indication: CHRONIC MYELOID LEUKAEMIA
     Dosage: 4 DF, QD (START DOSE 14 YERAS AGO AND END 8 YEARS AGO)
     Route: 065
  2. TASIGNA [Suspect]
     Active Substance: NILOTINIB
     Indication: CHRONIC MYELOID LEUKAEMIA
     Dosage: 800 MG, QD (STARTED TO 7 YEARS AGO)
     Route: 065
  3. TASIGNA [Suspect]
     Active Substance: NILOTINIB
     Dosage: 200 MG, QD
     Route: 065
     Dates: start: 201911

REACTIONS (7)
  - Bone marrow failure [Recovered/Resolved]
  - Syncope [Recovered/Resolved]
  - Thrombocytopenia [Recovered/Resolved]
  - Mood altered [Recovered/Resolved]
  - Splenomegaly [Recovered/Resolved]
  - Haemoglobin decreased [Recovered/Resolved]
  - Leukocytosis [Recovered/Resolved]

NARRATIVE: CASE EVENT DATE: 2012
